FAERS Safety Report 8759957 (Version 3)
Quarter: 2013Q1

REPORT INFORMATION
  Report Type: Spontaneous
  Country: FR (occurrence: FR)
  Receive Date: 20120829
  Receipt Date: 20130315
  Transmission Date: 20140127
  Serious: Yes (Hospitalization)
  Sender: FDA-Public Use
  Company Number: FR-GLAXOSMITHKLINE-B0824918A

PATIENT
  Age: 18 Year
  Sex: Male

DRUGS (5)
  1. LAMICTAL [Suspect]
     Indication: EPILEPSY
     Route: 048
     Dates: start: 20120716, end: 20120803
  2. DEPAKINE CHRONO [Concomitant]
     Indication: EPILEPSY
     Dosage: .5UNIT TWICE PER DAY
     Route: 065
  3. SERETIDE [Concomitant]
     Dosage: 1UNIT TWICE PER DAY
     Route: 065
  4. FLIXOVATE [Concomitant]
     Indication: ECZEMA
     Route: 065
     Dates: start: 20120719
  5. AMOXICILLIN [Concomitant]
     Indication: BRONCHITIS
     Dosage: 1G THREE TIMES PER DAY
     Route: 065
     Dates: start: 20120727

REACTIONS (13)
  - Drug reaction with eosinophilia and systemic symptoms [Recovered/Resolved]
  - Prurigo [Recovered/Resolved]
  - Aggression [Recovered/Resolved]
  - Asthenia [Recovered/Resolved]
  - Rash maculo-papular [Recovered/Resolved]
  - Lymphadenopathy [Recovered/Resolved]
  - Dermatitis exfoliative [Recovered/Resolved]
  - Pyrexia [Recovered/Resolved]
  - Face oedema [Recovered/Resolved]
  - Oedema peripheral [Recovered/Resolved]
  - Drug dispensing error [Unknown]
  - Incorrect dose administered [Unknown]
  - Medication error [Unknown]
